FAERS Safety Report 6887140-2 (Version None)
Quarter: 2010Q3

REPORT INFORMATION
  Report Type: 
  Country: None (occurrence: None)
  Receive Date: 20100730
  Receipt Date: 20100721
  Transmission Date: 20110219
  Serious: Yes (Hospitalization, Other)
  Sender: FDA-Public Use
  Company Number: US-PFIZER INC-2009194705

PATIENT
  Age: 62 Year
  Sex: Female

DRUGS (1)
  1. CHANTIX [Suspect]
     Indication: SMOKING CESSATION THERAPY
     Dosage: UNK
     Dates: start: 20080311

REACTIONS (27)
  - ACTIVITIES OF DAILY LIVING IMPAIRED [None]
  - ANGER [None]
  - ANXIETY DISORDER [None]
  - ASTHENIA [None]
  - AVOIDANT PERSONALITY DISORDER [None]
  - CHILLS [None]
  - DECREASED APPETITE [None]
  - DISTURBANCE IN ATTENTION [None]
  - EMOTIONAL DISTRESS [None]
  - FATIGUE [None]
  - FEAR [None]
  - HYPOTHYROIDISM [None]
  - INFECTION [None]
  - IRRITABILITY [None]
  - LOSS OF CONSCIOUSNESS [None]
  - MAJOR DEPRESSION [None]
  - MYOCARDIAL ISCHAEMIA [None]
  - NAUSEA [None]
  - OSTEOARTHRITIS [None]
  - PANIC ATTACK [None]
  - PYREXIA [None]
  - RHEUMATOID ARTHRITIS [None]
  - ROAD TRAFFIC ACCIDENT [None]
  - SCAR [None]
  - SLEEP DISORDER [None]
  - THERMAL BURN [None]
  - TIBIA FRACTURE [None]
